FAERS Safety Report 15323357 (Version 1)
Quarter: 2018Q3

REPORT INFORMATION
  Report Type: Spontaneous
  Country: US (occurrence: US)
  Receive Date: 20180827
  Receipt Date: 20180827
  Transmission Date: 20181010
  Serious: Yes (Other)
  Sender: FDA-Public Use
  Company Number: US-GILEAD-2018-0358872

PATIENT

DRUGS (1)
  1. YESCARTA [Suspect]
     Active Substance: AXICABTAGENE CILOLEUCEL
     Indication: PRODUCT USED FOR UNKNOWN INDICATION
     Dosage: UNK
     Route: 042
     Dates: start: 20180710, end: 20180710

REACTIONS (10)
  - Cytokine release syndrome [Unknown]
  - Dysgraphia [Recovered/Resolved]
  - Headache [Recovered/Resolved]
  - Neutropenia [Recovered/Resolved]
  - Incontinence [Recovered/Resolved]
  - Confusional state [Recovered/Resolved]
  - Pyrexia [Recovered/Resolved]
  - Hyponatraemia [Recovered/Resolved]
  - Encephalopathy [Unknown]
  - Aphasia [Recovered/Resolved]

NARRATIVE: CASE EVENT DATE: 20180713
